FAERS Safety Report 14028636 (Version 1)
Quarter: 2017Q3

REPORT INFORMATION
  Report Type: Spontaneous
  Country: US (occurrence: US)
  Receive Date: 20170930
  Receipt Date: 20170930
  Transmission Date: 20171128
  Serious: No
  Sender: FDA-Public Use
  Company Number: US-SA-2017SA061629

PATIENT
  Age: 50 Year
  Sex: Male

DRUGS (14)
  1. VALIUM [Concomitant]
     Active Substance: DIAZEPAM
  2. BACLOFEN. [Concomitant]
     Active Substance: BACLOFEN
  3. FLOMAX [Concomitant]
     Active Substance: TAMSULOSIN HYDROCHLORIDE
  4. LYRICA [Concomitant]
     Active Substance: PREGABALIN
  5. TRAMADOL. [Concomitant]
     Active Substance: TRAMADOL
  6. AMPYRA [Concomitant]
     Active Substance: DALFAMPRIDINE
  7. PROVIGIL [Concomitant]
     Active Substance: MODAFINIL
  8. OXYCODONE [Concomitant]
     Active Substance: OXYCODONE
  9. TECFIDERA [Concomitant]
     Active Substance: DIMETHYL FUMARATE
     Route: 065
  10. AUBAGIO [Suspect]
     Active Substance: TERIFLUNOMIDE
     Indication: MULTIPLE SCLEROSIS
     Route: 048
     Dates: start: 20170313
  11. ADDERALL [Concomitant]
     Active Substance: AMPHETAMINE ASPARTATE\AMPHETAMINE SULFATE\DEXTROAMPHETAMINE SACCHARATE\DEXTROAMPHETAMINE SULFATE
  12. AMBIEN [Concomitant]
     Active Substance: ZOLPIDEM TARTRATE
  13. ELAVIL [Concomitant]
     Active Substance: AMITRIPTYLINE HYDROCHLORIDE
     Route: 065
  14. COLACE [Concomitant]
     Active Substance: DOCUSATE SODIUM

REACTIONS (9)
  - Feeling of despair [Unknown]
  - Hypersomnia [Unknown]
  - Gait disturbance [Unknown]
  - Pain [Unknown]
  - Depressed mood [Unknown]
  - Decreased appetite [Unknown]
  - Memory impairment [Unknown]
  - Autophobia [Unknown]
  - Asthenia [Unknown]
